FAERS Safety Report 9139479 (Version 1)
Quarter: 2013Q1

REPORT INFORMATION
  Report Type: Spontaneous
  Country: ES (occurrence: ES)
  Receive Date: 20130305
  Receipt Date: 20130305
  Transmission Date: 20140127
  Serious: Yes (Disabling)
  Sender: FDA-Public Use
  Company Number: ES-MYLANLABS-2013S1004638

PATIENT
  Age: 69 Year
  Sex: Female
  Weight: 70 kg

DRUGS (1)
  1. ANASTROZOL [Suspect]
     Indication: BREAST CANCER
     Dosage: 1/24H
     Route: 048
     Dates: start: 20120217, end: 20120901

REACTIONS (1)
  - Macular degeneration [Not Recovered/Not Resolved]
